FAERS Safety Report 4275878-5 (Version None)
Quarter: 2004Q1

REPORT INFORMATION
  Report Type: 
  Country: None (occurrence: None)
  Receive Date: 20040121
  Receipt Date: 20030213
  Transmission Date: 20041129
  Serious: No
  Sender: FDA-Public Use
  Company Number: US-GLAXOSMITHKLINE-A0396678A

PATIENT
  Age: 79 Year
  Sex: Male

DRUGS (3)
  1. VALTREX [Suspect]
     Dosage: 1G THREE TIMES PER DAY
     Route: 048
     Dates: start: 20030210, end: 20030210
  2. TENORMIN [Concomitant]
  3. LACTEC [Concomitant]

REACTIONS (4)
  - ABDOMINAL PAIN UPPER [None]
  - DIZZINESS [None]
  - MALAISE [None]
  - POLLAKIURIA [None]
